FAERS Safety Report 15763165 (Version 1)
Quarter: 2018Q4

REPORT INFORMATION
  Report Type: Spontaneous
  Country: CZ (occurrence: CZ)
  Receive Date: 20181226
  Receipt Date: 20181226
  Transmission Date: 20190205
  Serious: Yes (Death, Other)
  Sender: FDA-Public Use
  Company Number: CZ-BAXTER-2018BAX030716

PATIENT
  Age: 5 Year
  Sex: Male

DRUGS (5)
  1. HOLOXAN 2 G [Suspect]
     Active Substance: IFOSFAMIDE
     Indication: PLEUROPULMONARY BLASTOMA
     Dosage: DOSAGE FORM: UNSPECIFIED
     Route: 065
  2. VINCRISTINE [Suspect]
     Active Substance: VINCRISTINE
     Indication: PLEUROPULMONARY BLASTOMA
     Dosage: DOSAGE FORM: UNSPECIFIED
     Route: 065
  3. ACTINOMYCIN D [Suspect]
     Active Substance: DACTINOMYCIN
     Indication: PLEUROPULMONARY BLASTOMA
     Dosage: DOSAGE FORM: UNSPECIFIED
     Route: 065
  4. ACTINOMYCIN C [Suspect]
     Active Substance: CACTINOMYCIN
     Indication: PLEUROPULMONARY BLASTOMA
     Route: 065
  5. DOXORUBICIN [Suspect]
     Active Substance: DOXORUBICIN
     Indication: PLEUROPULMONARY BLASTOMA
     Route: 065

REACTIONS (6)
  - Product use in unapproved indication [Unknown]
  - Pleuropulmonary blastoma [Fatal]
  - Malignant neoplasm progression [Fatal]
  - Infection [Unknown]
  - Off label use [Unknown]
  - Cachexia [Unknown]
